FAERS Safety Report 6918226-1 (Version None)
Quarter: 2010Q3

REPORT INFORMATION
  Report Type: 
  Country: None (occurrence: None)
  Receive Date: 20100806
  Receipt Date: 20100728
  Transmission Date: 20110219
  Serious: Yes (Disabling)
  Sender: FDA-Public Use
  Company Number: 2007AL001357

PATIENT
  Age: 69 Year
  Sex: Female
  Weight: 53.0709 kg

DRUGS (73)
  1. METOCLOPRAMIDE TABLETS USP, 10 MG (PUREPAC) [Suspect]
     Indication: GASTROOESOPHAGEAL REFLUX DISEASE
     Dosage: 10 MG;QID;PO
     Route: 048
     Dates: start: 20000508, end: 20040901
  2. GABAPENTIN [Concomitant]
  3. NEXIUM [Concomitant]
  4. ALPRAZOLAM [Concomitant]
  5. TRAZODONE HCL [Concomitant]
  6. BACLOFEN [Concomitant]
  7. PLAVIX [Concomitant]
  8. NITROGLYCERIN [Concomitant]
  9. VEETIDS [Concomitant]
  10. PROPOXYPHENE NAPSYLATE AND ACETAMINOPHEN [Concomitant]
  11. FLUOXETINE [Concomitant]
  12. NEURONTIN [Concomitant]
  13. NABUMETONE [Concomitant]
  14. HYDROCODONE BITARTRATE AND ACETAMINOPHEN [Concomitant]
  15. OMEPRAZOLE [Concomitant]
  16. FEMHRT [Concomitant]
  17. VERAPAMIL HCL [Concomitant]
  18. PRILOSEC [Concomitant]
  19. METRONIDAZOLE [Concomitant]
  20. BIAXIN [Concomitant]
  21. CLONAZEPAM [Concomitant]
  22. BLEPHAMIDE [Concomitant]
  23. PREMARIN [Concomitant]
  24. CLORAZEPATE DIPOTASSIUM [Concomitant]
  25. PROPACET 100 [Concomitant]
  26. CELEBREX [Concomitant]
  27. MEDROXYPR AC [Concomitant]
  28. ZOVIRAX [Concomitant]
  29. PROZAC [Concomitant]
  30. AMITRIPTYLINE HYDROCHLORIDE [Concomitant]
  31. CLORAZ DIPOT [Concomitant]
  32. ROXICET [Concomitant]
  33. CEPHALEXIN [Concomitant]
  34. PROPULSID [Concomitant]
  35. NITROSTAT [Concomitant]
  36. VIOXX [Concomitant]
  37. DOXYCYCL HYC [Concomitant]
  38. TUSSIONEX [Concomitant]
  39. NYSTATIN [Concomitant]
  40. NASACORT AQ [Concomitant]
  41. PLETAL [Concomitant]
  42. MIRALAX [Concomitant]
  43. PENICILLIN VK [Concomitant]
  44. FAMOTIDINE [Concomitant]
  45. KETOROLAC [Concomitant]
  46. RELAFEN [Concomitant]
  47. MACROBID [Concomitant]
  48. OXYBUTYNIN [Concomitant]
  49. TORADOL [Concomitant]
  50. SMZ/TMP DS [Concomitant]
  51. AMOXIL [Concomitant]
  52. FOLIC ACID [Concomitant]
  53. VITAMIN B-12 [Concomitant]
  54. NIACIN [Concomitant]
  55. KEPPRA [Concomitant]
  56. VITAMIN E [Concomitant]
  57. EFFEXOR [Concomitant]
  58. FISH PIL [Concomitant]
  59. DARVOCET [Concomitant]
  60. LIPITOR [Concomitant]
  61. LIDOCAINE HCL VISCOUS [Concomitant]
  62. PREMARIN [Concomitant]
  63. NIASPAN [Concomitant]
  64. DOCUSATE [Concomitant]
  65. PROPOXYPHENE HCL [Concomitant]
  66. CLOPIDOGREL [Concomitant]
  67. CILOSTAZOL [Concomitant]
  68. EFFEXOR XR [Concomitant]
  69. GABAPENTIN [Concomitant]
  70. ASCORBIC ACID [Concomitant]
  71. ARICEPT [Concomitant]
  72. ACIPHEX [Concomitant]
  73. AMANTADINE [Concomitant]

REACTIONS (37)
  - BLINDNESS [None]
  - BRUXISM [None]
  - CAROTID ARTERY STENOSIS [None]
  - CATARACT [None]
  - DEFORMITY [None]
  - DISABILITY [None]
  - DIZZINESS [None]
  - DRY EYE [None]
  - DYSPHAGIA [None]
  - EAR PAIN [None]
  - EXCORIATION [None]
  - EXTRAPYRAMIDAL DISORDER [None]
  - FALL [None]
  - FIBROSIS [None]
  - GAIT DISTURBANCE [None]
  - GENERAL PHYSICAL HEALTH DETERIORATION [None]
  - GRIMACING [None]
  - HYPOAESTHESIA EYE [None]
  - INJURY [None]
  - LARYNGITIS [None]
  - LEUKOPLAKIA [None]
  - MUCOSAL INFLAMMATION [None]
  - MUSCULOSKELETAL DISCOMFORT [None]
  - OESOPHAGEAL ACHALASIA [None]
  - PAIN [None]
  - PERIPHERAL VASCULAR DISORDER [None]
  - RADICULOPATHY [None]
  - RHINALGIA [None]
  - SENSATION OF FOREIGN BODY [None]
  - SPINAL OSTEOARTHRITIS [None]
  - TARDIVE DYSKINESIA [None]
  - TEMPOROMANDIBULAR JOINT SYNDROME [None]
  - TINNITUS [None]
  - UPPER-AIRWAY COUGH SYNDROME [None]
  - VIRAL INFECTION [None]
  - VOCAL CORD INFLAMMATION [None]
  - WHEEZING [None]
